FAERS Safety Report 6906497-7 (Version None)
Quarter: 2010Q3

REPORT INFORMATION
  Report Type: 
  Country: None (occurrence: None)
  Receive Date: 20100804
  Receipt Date: 20100723
  Transmission Date: 20110219
  Serious: Yes (Other)
  Sender: FDA-Public Use
  Company Number: JP-PFIZER INC-2010083593

PATIENT
  Age: 75 Year
  Sex: Male

DRUGS (3)
  1. CHAMPIX [Suspect]
     Indication: SMOKING CESSATION THERAPY
     Dosage: 1 MG, PER DAY
     Route: 048
     Dates: start: 20100609, end: 20100623
  2. ALLEGRA [Suspect]
     Indication: DRUG ERUPTION
  3. SPIRIVA [Concomitant]
     Indication: EMPHYSEMA
     Dosage: 18 UG, PER DAY
     Dates: start: 20100609, end: 20100623

REACTIONS (2)
  - DRUG ERUPTION [None]
  - HEPATIC FUNCTION ABNORMAL [None]
